FAERS Safety Report 23531623 (Version 1)
Quarter: 2024Q1

REPORT INFORMATION
  Report Type: Spontaneous
  Country: GB (occurrence: GB)
  Receive Date: 20240216
  Receipt Date: 20240216
  Transmission Date: 20240410
  Serious: Yes (Hospitalization, Other)
  Sender: FDA-Public Use
  Company Number: None

PATIENT
  Age: 69 Year
  Sex: Female

DRUGS (1)
  1. DICLOFENAC [Suspect]
     Active Substance: DICLOFENAC
     Indication: Back pain
     Dosage: UNK, (FOR SEVERAL YEARS)
     Route: 065

REACTIONS (2)
  - Intestinal diaphragm disease [Recovered/Resolved]
  - Ileal ulcer [Unknown]
